FAERS Safety Report 14735773 (Version 1)
Quarter: 2018Q2

REPORT INFORMATION
  Report Type: Spontaneous
  Country: US (occurrence: US)
  Receive Date: 20180409
  Receipt Date: 20180409
  Transmission Date: 20180711
  Serious: No
  Sender: FDA-Public Use
  Company Number: US-SUNOVION-2018SUN001180

PATIENT
  Age: 75 Year
  Sex: Female

DRUGS (1)
  1. LONHALA MAGNAIR [Suspect]
     Active Substance: GLYCOPYRROLATE
     Indication: CHRONIC OBSTRUCTIVE PULMONARY DISEASE
     Dosage: 25MCG/1ML, QD
     Route: 055
     Dates: start: 201803

REACTIONS (4)
  - Cough [Unknown]
  - Dry throat [Unknown]
  - Product colour issue [Unknown]
  - Productive cough [Unknown]

NARRATIVE: CASE EVENT DATE: 201803
